FAERS Safety Report 12585850 (Version 1)
Quarter: 2016Q3

REPORT INFORMATION
  Report Type: Spontaneous
  Country: US (occurrence: None)
  Receive Date: 20160722
  Receipt Date: 20160722
  Transmission Date: 20161109
  Serious: Yes (Death)
  Sender: FDA-Public Use
  Company Number: None

PATIENT
  Age: 72 Year
  Sex: Female

DRUGS (2)
  1. ADEMPAS [Suspect]
     Active Substance: RIOCIGUAT
     Indication: HEART DISEASE CONGENITAL
     Route: 048
     Dates: start: 20150912
  2. ADEMPAS [Suspect]
     Active Substance: RIOCIGUAT
     Indication: CONNECTIVE TISSUE DISORDER
     Route: 048
     Dates: start: 20150912

REACTIONS (3)
  - Pulmonary function test abnormal [None]
  - Dyspnoea [None]
  - Peripheral swelling [None]

NARRATIVE: CASE EVENT DATE: 20151001
